FAERS Safety Report 7953094-0 (Version None)
Quarter: 2011Q4

REPORT INFORMATION
  Report Type: 
  Country: None (occurrence: None)
  Receive Date: 20111201
  Receipt Date: 20111121
  Transmission Date: 20120403
  Serious: Yes (Hospitalization)
  Sender: FDA-Public Use
  Company Number: CA-BAXTER-2011BH032555

PATIENT
  Sex: Male

DRUGS (3)
  1. EXTRANEAL [Suspect]
     Indication: PERITONEAL DIALYSIS
     Route: 033
  2. DIANEAL [Suspect]
     Indication: PERITONEAL DIALYSIS
     Route: 033
     Dates: start: 20100701
  3. DIANEAL [Suspect]
     Route: 033
     Dates: start: 20100701

REACTIONS (5)
  - SUBDURAL HAEMATOMA [None]
  - ASTHENIA [None]
  - CHILLS [None]
  - HEADACHE [None]
  - PYREXIA [None]
